FAERS Safety Report 8421024-3 (Version None)
Quarter: 2012Q2

REPORT INFORMATION
  Report Type: 
  Country: None (occurrence: None)
  Receive Date: 20120608
  Receipt Date: 20120529
  Transmission Date: 20120825
  Serious: Yes (Other)
  Sender: FDA-Public Use
  Company Number: CA-JNJFOC-20120504747

PATIENT
  Sex: Female
  Weight: 70.4 kg

DRUGS (12)
  1. CORTISONE ACETATE [Concomitant]
     Indication: ARTHRALGIA
     Dosage: IN BACK (PRN) AND RIGHT KNEE
     Route: 065
  2. PENTASA [Concomitant]
     Route: 065
  3. PREMARIN [Concomitant]
     Route: 065
  4. REMICADE [Suspect]
     Route: 042
     Dates: start: 20110101
  5. APO-BROMAZEPAM [Concomitant]
     Route: 065
  6. REMICADE [Suspect]
     Route: 042
     Dates: start: 20120529
  7. ALL OTHER THERAPEUTICS [Concomitant]
     Indication: ARTHRALGIA
     Route: 061
  8. MICARDIS [Concomitant]
     Route: 065
  9. PREVACID [Concomitant]
     Route: 065
  10. REMICADE [Suspect]
     Indication: CROHN'S DISEASE
     Dosage: 17TH INFUSION
     Route: 042
     Dates: start: 20120503
  11. SYNTHROID [Concomitant]
     Route: 065
  12. CORTISONE ACETATE [Concomitant]
     Indication: BACK PAIN
     Dosage: IN BACK (PRN) AND RIGHT KNEE
     Route: 065

REACTIONS (3)
  - BRONCHITIS VIRAL [None]
  - BACK PAIN [None]
  - CATARACT [None]
